FAERS Safety Report 5963079-1 (Version None)
Quarter: 2008Q4

REPORT INFORMATION
  Report Type: 
  Country: None (occurrence: None)
  Receive Date: 20081124
  Receipt Date: 20081111
  Transmission Date: 20090506
  Serious: Yes (Other)
  Sender: FDA-Public Use
  Company Number: US-ROCHE-584481

PATIENT
  Sex: Female
  Weight: 58.5 kg

DRUGS (2)
  1. PEGASYS [Suspect]
     Indication: HEPATITIS C
     Route: 058
     Dates: start: 20080512
  2. COPEGUS [Suspect]
     Indication: HEPATITIS C
     Route: 048
     Dates: start: 20080512

REACTIONS (7)
  - ALOPECIA [None]
  - BREAST MASS [None]
  - DRY MOUTH [None]
  - DRY SKIN [None]
  - LYMPHADENITIS [None]
  - LYMPHADENOPATHY [None]
  - WEIGHT DECREASED [None]
